FAERS Safety Report 16034304 (Version 1)
Quarter: 2019Q1

REPORT INFORMATION
  Report Type: Spontaneous
  Country: US (occurrence: US)
  Receive Date: 20190305
  Receipt Date: 20190305
  Transmission Date: 20190418
  Serious: No
  Sender: FDA-Public Use
  Company Number: US-IMPAX LABORATORIES, LLC-2018-IPXL-02804

PATIENT
  Sex: Female
  Weight: 77 kg

DRUGS (2)
  1. RYTARY [Suspect]
     Active Substance: CARBIDOPA\LEVODOPA
     Indication: PARKINSON^S DISEASE
     Dosage: UNK, 13 CAPSULES, DAILY
     Route: 065
     Dates: start: 201801, end: 2018
  2. RYTARY [Suspect]
     Active Substance: CARBIDOPA\LEVODOPA
     Dosage: 48.75/195MG, 3 CAPS(06:00AM), 2 AT09:00AM, 3 IN AFTERNOON, 2 AT03:00PM, 3 AT06:00PM, 2 AT BEDTIME
     Route: 065
     Dates: start: 2018

REACTIONS (5)
  - Agitation [Unknown]
  - Nausea [Unknown]
  - Treatment noncompliance [Unknown]
  - Anxiety [Unknown]
  - Prescribed overdose [Unknown]

NARRATIVE: CASE EVENT DATE: 2018
